FAERS Safety Report 15901917 (Version 3)
Quarter: 2019Q3

REPORT INFORMATION
  Report Type: Report from Study
  Country: IT (occurrence: IT)
  Receive Date: 20190201
  Receipt Date: 20190709
  Transmission Date: 20191004
  Serious: Yes (Hospitalization)
  Sender: FDA-Public Use
  Company Number: IT-MYLANLABS-2019M1009583

PATIENT
  Age: 69 Year
  Sex: Female
  Weight: 60 kg

DRUGS (6)
  1. PLASIL                             /00041901/ [Interacting]
     Active Substance: METOCLOPRAMIDE
     Indication: VOMITING
     Dosage: 2 MILLILITER, TOTAL
     Route: 030
     Dates: start: 20190110, end: 20190110
  2. ESOMEPRAZOLE. [Suspect]
     Active Substance: ESOMEPRAZOLE MAGNESIUM
     Indication: GASTRITIS
     Dosage: 1 DOSAGE FORM, QD
     Route: 048
     Dates: start: 20140101, end: 20190111
  3. LERCANIDIPINE [Interacting]
     Active Substance: LERCANIDIPINE
     Indication: HYPERTENSION
     Dosage: 1 DOSAGE FORM, QD
     Route: 048
     Dates: start: 20140101, end: 20190111
  4. TACROLIMUS. [Interacting]
     Active Substance: TACROLIMUS
     Indication: TRANSPLANT
     Dosage: 1 MILLIGRAM, QD
     Route: 048
     Dates: start: 20190111, end: 20190114
  5. CLARITHROMYCIN. [Interacting]
     Active Substance: CLARITHROMYCIN
     Indication: PNEUMONIA
     Dosage: 1 GRAM, QD
     Route: 048
     Dates: start: 20190111, end: 20190115
  6. TACROLIMUS. [Interacting]
     Active Substance: TACROLIMUS
     Dosage: 1.5 MILLIGRAM, QD
     Route: 048
     Dates: start: 20190111, end: 20190117

REACTIONS (6)
  - Diarrhoea [Recovering/Resolving]
  - Drug interaction [Unknown]
  - Decreased appetite [Recovering/Resolving]
  - Vomiting [Recovering/Resolving]
  - Acute kidney injury [Recovering/Resolving]
  - Nausea [Recovering/Resolving]

NARRATIVE: CASE EVENT DATE: 20190111
